FAERS Safety Report 11550698 (Version 1)
Quarter: 2015Q3

REPORT INFORMATION
  Report Type: Spontaneous
  Country: US (occurrence: US)
  Receive Date: 20150903
  Receipt Date: 20150903
  Transmission Date: 20151125
  Serious: No
  Sender: FDA-Public Use
  Company Number: US-ELI_LILLY_AND_COMPANY-US201211006165

PATIENT
  Age: 73 Year
  Sex: Female

DRUGS (3)
  1. LANTUS [Concomitant]
     Active Substance: INSULIN GLARGINE
     Dosage: 120 U, QD
  2. HUMALOG [Suspect]
     Active Substance: INSULIN LISPRO
     Dosage: 25 U, TID
  3. HUMALOG [Suspect]
     Active Substance: INSULIN LISPRO
     Indication: TYPE 2 DIABETES MELLITUS
     Dosage: 30 U, TID
     Dates: start: 20121108

REACTIONS (11)
  - Blood glucose increased [Recovered/Resolved]
  - Burning sensation [Unknown]
  - Headache [Unknown]
  - Mobility decreased [Recovered/Resolved]
  - Gait disturbance [Unknown]
  - Feeling abnormal [Recovered/Resolved]
  - Osteoporosis [Unknown]
  - Abdominal distension [Unknown]
  - Pain [Recovered/Resolved]
  - Joint contracture [Unknown]
  - Peripheral swelling [Unknown]

NARRATIVE: CASE EVENT DATE: 201211
